FAERS Safety Report 4509885-1 (Version None)
Quarter: 2004Q4

REPORT INFORMATION
  Report Type: 
  Country: None (occurrence: None)
  Receive Date: 20041124
  Receipt Date: 20040810
  Transmission Date: 20050328
  Serious: Yes (Death, Other)
  Sender: FDA-Public Use
  Company Number: US-AMGEN-US086890

PATIENT

DRUGS (1)
  1. PROCRIT [Suspect]
     Indication: ANAEMIA

REACTIONS (1)
  - NO ADVERSE DRUG EFFECT [None]
